FAERS Safety Report 19986674 (Version 2)
Quarter: 2021Q4

REPORT INFORMATION
  Report Type: Spontaneous
  Country: US (occurrence: US)
  Receive Date: 20211022
  Receipt Date: 20211201
  Transmission Date: 20220303
  Serious: No
  Sender: FDA-Public Use
  Company Number: US-PFIZER INC-202101276741

PATIENT
  Age: 59 Year
  Sex: Female
  Weight: 67.13 kg

DRUGS (2)
  1. ESTRING [Suspect]
     Active Substance: ESTRADIOL
     Indication: Atrophic vulvovaginitis
     Dosage: UNK (ONE RING)
  2. CLARITHROMYCIN [Concomitant]
     Active Substance: CLARITHROMYCIN
     Indication: Urinary tract infection
     Dosage: 100 MG, AFTER INTERCOURSE AND 12 HOURS LATER

REACTIONS (1)
  - Therapeutic product effect decreased [Unknown]
